FAERS Safety Report 5409557-5 (Version None)
Quarter: 2007Q3

REPORT INFORMATION
  Report Type: 
  Country: None (occurrence: None)
  Receive Date: 20070807
  Receipt Date: 20070723
  Transmission Date: 20080115
  Serious: No
  Sender: FDA-Public Use
  Company Number: 2007S1006765

PATIENT
  Age: 47 Year
  Sex: Male
  Weight: 122.4712 kg

DRUGS (5)
  1. FENTANYL TRANSDERMAL SYSTEM [Suspect]
     Indication: COMPLEX REGIONAL PAIN SYNDROME
     Dosage: 75 UG/HR; EVERY 3 DAYS; TRANSDERMAL
     Route: 062
     Dates: start: 20050101
  2. HYDROMORPHONE HYDROCHLORIDE [Concomitant]
  3. LYRICA [Concomitant]
  4. VENLAFAXINE HCL [Concomitant]
  5. LISINOPRIL [Concomitant]

REACTIONS (5)
  - DRUG WITHDRAWAL SYNDROME [None]
  - FORMICATION [None]
  - HYPERHIDROSIS [None]
  - INSOMNIA [None]
  - PHARMACEUTICAL PRODUCT COMPLAINT [None]
